FAERS Safety Report 9120629 (Version 1)
Quarter: 2013Q1

REPORT INFORMATION
  Report Type: Spontaneous
  Country: US (occurrence: US)
  Receive Date: 20130226
  Receipt Date: 20130226
  Transmission Date: 20140127
  Serious: No
  Sender: FDA-Public Use
  Company Number: US-PFIZER INC-2013065895

PATIENT
  Sex: Female

DRUGS (1)
  1. ELELYSO [Suspect]
     Dosage: UNK
     Dates: start: 2012

REACTIONS (7)
  - Wisdom teeth removal [Unknown]
  - Hypoaesthesia oral [Unknown]
  - Hypoaesthesia oral [Unknown]
  - Ageusia [Unknown]
  - Insomnia [Unknown]
  - Fatigue [Unknown]
  - Hypersensitivity [Unknown]
